FAERS Safety Report 5021878-7 (Version None)
Quarter: 2006Q2

REPORT INFORMATION
  Report Type: 
  Country: None (occurrence: None)
  Receive Date: 20060609
  Receipt Date: 20060531
  Transmission Date: 20061013
  Serious: Yes (Hospitalization)
  Sender: FDA-Public Use
  Company Number: BR-JNJFOC-20060600820

PATIENT
  Age: 44 Year
  Sex: Female
  Weight: 52 kg

DRUGS (8)
  1. HALDOL [Suspect]
     Indication: PANIC DISORDER
     Route: 048
  2. HALDOL [Suspect]
     Indication: DEPRESSION
     Route: 048
  3. RIVOTRIL [Concomitant]
     Indication: PANIC DISORDER
     Route: 048
  4. RIVOTRIL [Concomitant]
     Indication: DEPRESSION
     Route: 048
  5. FENERGAN [Concomitant]
     Indication: PANIC DISORDER
     Route: 048
  6. FENERGAN [Concomitant]
     Indication: DEPRESSION
     Route: 048
  7. ENALAPRIL [Concomitant]
     Indication: HYPERTENSION
     Route: 048
  8. HYDROCHLOROTHIAZIDE [Concomitant]
     Indication: HYPERTENSION
     Route: 048

REACTIONS (4)
  - ANOREXIA [None]
  - TREMOR [None]
  - UTERINE LEIOMYOMA [None]
  - WEIGHT DECREASED [None]
